FAERS Safety Report 7199805-6 (Version None)
Quarter: 2010Q4

REPORT INFORMATION
  Report Type: 
  Country: None (occurrence: None)
  Receive Date: 20101228
  Receipt Date: 20101221
  Transmission Date: 20110411
  Serious: No
  Sender: FDA-Public Use
  Company Number: US-PFIZER INC-2010176831

PATIENT
  Sex: Male
  Weight: 72.562 kg

DRUGS (5)
  1. TOVIAZ [Suspect]
     Indication: URINARY TRACT DISORDER
     Dosage: 4 MG, DAILY
     Route: 048
     Dates: start: 20101220
  2. TOVIAZ [Suspect]
     Indication: DYSURIA
  3. FINASTERIDE [Concomitant]
     Indication: PROSTATOMEGALY
     Dosage: UNK
  4. CARDURA [Concomitant]
     Indication: PROSTATOMEGALY
  5. LISINOPRIL [Concomitant]
     Indication: HYPERTENSION
     Dosage: UNK

REACTIONS (2)
  - DRY MOUTH [None]
  - THROAT IRRITATION [None]
